FAERS Safety Report 4287314-3 (Version None)
Quarter: 2004Q1

REPORT INFORMATION
  Report Type: 
  Country: None (occurrence: None)
  Receive Date: 20040205
  Receipt Date: 20040116
  Transmission Date: 20041129
  Serious: Yes (Life-Threatening, Hospitalization, Disabling, Other)
  Sender: FDA-Public Use
  Company Number: EWC040137684

PATIENT
  Age: 42 Year
  Sex: Male
  Weight: 88 kg

DRUGS (14)
  1. VINCRISTINE SULFATE [Suspect]
     Indication: NON-HODGKIN'S LYMPHOMA
     Dates: start: 20010501
  2. DOXORUBICIN HCL [Concomitant]
  3. CYCLOPHOSPHAMIDE [Concomitant]
  4. IMMUNE GLOBULIN INTRAVENOUS (HUMAN) [Concomitant]
  5. OMEPRAZOLE [Concomitant]
  6. VI-DE 3 (COLECALCIFEROL) [Concomitant]
  7. FOLVITE (FOLIC ACID) [Concomitant]
  8. DEQUONAL [Concomitant]
  9. MYCOSTATIN [Concomitant]
  10. DUPHALAC [Concomitant]
  11. ALLOPURINOL [Concomitant]
  12. SOLU-MEDROL [Concomitant]
  13. PRIMPERAN TAB [Concomitant]
  14. RED BLOOD CELLS [Concomitant]

REACTIONS (5)
  - CEREBROVASCULAR DISORDER [None]
  - IDIOPATHIC THROMBOCYTOPENIC PURPURA [None]
  - ISCHAEMIC STROKE [None]
  - NEUROPATHY [None]
  - SUBCLAVIAN VEIN THROMBOSIS [None]
